FAERS Safety Report 6007510-4 (Version None)
Quarter: 2008Q4

REPORT INFORMATION
  Report Type: 
  Country: None (occurrence: None)
  Receive Date: 20081217
  Receipt Date: 20080501
  Transmission Date: 20090506
  Serious: No
  Sender: FDA-Public Use
  Company Number: US-ASTRAZENECA-2008UW08970

PATIENT
  Age: 89 Year
  Sex: Female
  Weight: 45.4 kg

DRUGS (6)
  1. CRESTOR [Suspect]
     Indication: BLOOD CHOLESTEROL INCREASED
     Route: 048
  2. CRESTOR [Suspect]
     Route: 048
  3. LIPITOR [Suspect]
  4. PLAVIX [Concomitant]
  5. ACTONEL [Concomitant]
  6. COZAAR [Concomitant]

REACTIONS (1)
  - MUSCLE SPASMS [None]
